FAERS Safety Report 5549849-2 (Version None)
Quarter: 2007Q4

REPORT INFORMATION
  Report Type: 
  Country: None (occurrence: None)
  Receive Date: 20071206
  Receipt Date: 20071206
  Transmission Date: 20080405
  Serious: Yes (Death, Life-Threatening, Hospitalization)
  Sender: FDA-Public Use
  Company Number: None

PATIENT
  Sex: Male
  Weight: 70.2 kg

DRUGS (6)
  1. PEG-INTRON [Suspect]
     Indication: HEPATITIS C
     Dosage: 96 MCG; ONCE WEEKLY; SUBCUTANEOUS INJECTION;
     Route: 058
     Dates: start: 20071112, end: 20071121
  2. REBETOL [Suspect]
     Indication: HEPATITIS C
     Dosage: 800 MG; DAILY; ORAL - CAPSULES;
     Route: 048
     Dates: start: 20071112, end: 20071121
  3. LACTULOSE [Concomitant]
  4. AMARYL [Concomitant]
  5. TRICOR [Concomitant]
  6. LISINOPRIL [Concomitant]

REACTIONS (10)
  - CARDIAC ARREST [None]
  - HAEMATOCRIT DECREASED [None]
  - LIVER TRANSPLANT [None]
  - LIVER TRANSPLANT REJECTION [None]
  - OPERATIVE HAEMORRHAGE [None]
  - POST PROCEDURAL HAEMORRHAGE [None]
  - PROCEDURAL COMPLICATION [None]
  - PROTHROMBIN TIME SHORTENED [None]
  - SUPRAVENTRICULAR TACHYCARDIA [None]
  - WHITE BLOOD CELL COUNT DECREASED [None]
